FAERS Safety Report 12716965 (Version 1)
Quarter: 2016Q3

REPORT INFORMATION
  Report Type: Spontaneous
  Country: BR (occurrence: BR)
  Receive Date: 20160906
  Receipt Date: 20160906
  Transmission Date: 20161109
  Serious: Yes (Other)
  Sender: FDA-Public Use
  Company Number: PHHY2016BR121975

PATIENT
  Sex: Male

DRUGS (1)
  1. ZOMETA [Suspect]
     Active Substance: ZOLEDRONIC ACID
     Indication: METASTASES TO BONE
     Dosage: UNK UNK, QMO
     Route: 065
     Dates: start: 201501

REACTIONS (7)
  - Pain [Unknown]
  - Osteonecrosis of jaw [Unknown]
  - Procedural complication [Unknown]
  - Suture rupture [Unknown]
  - Impaired healing [Unknown]
  - Swelling [Unknown]
  - Pulpitis dental [Unknown]
